FAERS Safety Report 7537115-5 (Version None)
Quarter: 2011Q2

REPORT INFORMATION
  Report Type: 
  Country: None (occurrence: None)
  Receive Date: 20110603
  Receipt Date: 20110518
  Transmission Date: 20111010
  Serious: Yes (Other)
  Sender: FDA-Public Use
  Company Number: 2011MA006053

PATIENT
  Age: 51 Year
  Sex: Female

DRUGS (6)
  1. INDAPAMIDE [Suspect]
  2. METOPROLOL TARTRATE [Concomitant]
  3. INFLIXIMAB [Concomitant]
  4. LEFLUNOMIDE [Concomitant]
  5. ENALAPRIL MALEATE [Concomitant]
  6. SULFASALAZINE [Concomitant]

REACTIONS (5)
  - BLOOD IMMUNOGLOBULIN G INCREASED [None]
  - BLOOD IMMUNOGLOBULIN M DECREASED [None]
  - RED BLOOD CELL SEDIMENTATION RATE INCREASED [None]
  - COMPLEMENT FACTOR C3 INCREASED [None]
  - LICHENOID KERATOSIS [None]
